FAERS Safety Report 9463695 (Version 2)
Quarter: 2013Q3

REPORT INFORMATION
  Report Type: Report from Study
  Country: VE (occurrence: VE)
  Receive Date: 20130819
  Receipt Date: 20130826
  Transmission Date: 20140515
  Serious: Yes (Hospitalization)
  Sender: FDA-Public Use
  Company Number: PHHY2013VE088773

PATIENT
  Age: 50 Year
  Sex: Female

DRUGS (3)
  1. SANDOSTATIN LAR [Suspect]
     Indication: NEUROENDOCRINE TUMOUR
     Dosage: 20 MG, UNK
     Dates: start: 20130516, end: 20130619
  2. SANDOSTATIN LAR [Suspect]
     Indication: DIABETES MELLITUS MANAGEMENT
     Dosage: 1 AMPOULE, EVERY 21 DAYS
     Route: 058
     Dates: start: 201305, end: 201306
  3. SANDOSTATIN LAR [Suspect]
     Indication: OFF LABEL USE

REACTIONS (2)
  - Ovarian neoplasm [Recovered/Resolved]
  - Erythema [Unknown]
